FAERS Safety Report 17298455 (Version 1)
Quarter: 2020Q1

REPORT INFORMATION
  Report Type: Report from Study
  Country: US (occurrence: BR)
  Receive Date: 20200122
  Receipt Date: 20200122
  Transmission Date: 20200409
  Serious: Yes (Death, Life-Threatening, Hospitalization, Other)
  Sender: FDA-Public Use
  Company Number: NVSC2020BR012431

PATIENT
  Sex: Female

DRUGS (10)
  1. NAPHAZOLINE HYDROCHLORIDE AND PHENIRAMINE MAL [Concomitant]
     Indication: LACRIMATION INCREASED
     Dosage: UNK
     Route: 065
     Dates: start: 20190220
  2. CAPTOPRIL. [Concomitant]
     Active Substance: CAPTOPRIL
     Indication: HYPERTENSION
     Dosage: UNK
     Route: 065
     Dates: start: 2008
  3. ABEMACICLIB [Suspect]
     Active Substance: ABEMACICLIB
     Indication: INVASIVE DUCTAL BREAST CARCINOMA
     Dosage: 150 MG, BID
     Route: 048
     Dates: start: 20190212, end: 20190910
  4. LETROZOLE. [Suspect]
     Active Substance: LETROZOLE
     Indication: INVASIVE DUCTAL BREAST CARCINOMA
     Dosage: 2.5 MG, QD
     Route: 048
     Dates: start: 20190212, end: 20190910
  5. ACETYLSALICYLIC ACID [Concomitant]
     Active Substance: ASPIRIN
     Indication: PROPHYLAXIS
     Dosage: UNK
     Route: 065
     Dates: start: 2008
  6. METFORMIN [Concomitant]
     Active Substance: METFORMIN HYDROCHLORIDE
     Indication: TYPE 2 DIABETES MELLITUS
     Dosage: UNK
     Route: 065
     Dates: start: 2008
  7. DIAZEPAM. [Concomitant]
     Active Substance: DIAZEPAM
     Indication: DEPRESSION
     Dosage: UNK
     Route: 065
  8. PARACETAMOL [Concomitant]
     Active Substance: ACETAMINOPHEN
     Indication: OSTEOARTHRITIS
     Dosage: UNK
     Route: 065
     Dates: start: 2012
  9. HYDROCHLOORTHIAZIDE [Concomitant]
     Active Substance: HYDROCHLOROTHIAZIDE
     Indication: HYPERTENSION
     Dosage: UNK
     Route: 065
     Dates: start: 2008
  10. AMITRIPTYLINE [Concomitant]
     Active Substance: AMITRIPTYLINE
     Indication: DEPRESSION
     Dosage: UNK
     Route: 065
     Dates: start: 1978

REACTIONS (16)
  - Diarrhoea [Fatal]
  - Cardiac arrest [Unknown]
  - Respiratory rate increased [Unknown]
  - Electrolyte imbalance [Unknown]
  - Acute kidney injury [Unknown]
  - Vomiting [Unknown]
  - Abdominal distension [Unknown]
  - Fatigue [Unknown]
  - Abdominal sepsis [Unknown]
  - Urine output decreased [Unknown]
  - Dyspepsia [Unknown]
  - Intestinal perforation [Fatal]
  - Abdominal pain [Fatal]
  - Confusional state [Unknown]
  - Tachycardia [Unknown]
  - Intestinal ischaemia [Fatal]

NARRATIVE: CASE EVENT DATE: 20190630
